FAERS Safety Report 16214109 (Version 2)
Quarter: 2019Q4

REPORT INFORMATION
  Report Type: Spontaneous
  Country: US (occurrence: US)
  Receive Date: 20190418
  Receipt Date: 20191227
  Transmission Date: 20200122
  Serious: Yes (Death, Hospitalization, Other)
  Sender: FDA-Public Use
  Company Number: US-JNJFOC-20190422323

PATIENT
  Age: 80 Year
  Sex: Female

DRUGS (2)
  1. XARELTO [Suspect]
     Active Substance: RIVAROXABAN
     Indication: PULMONARY EMBOLISM
     Route: 048
     Dates: start: 20160727, end: 20170611
  2. XARELTO [Suspect]
     Active Substance: RIVAROXABAN
     Indication: DEEP VEIN THROMBOSIS

REACTIONS (8)
  - Hypovolaemic shock [Recovering/Resolving]
  - Gastrointestinal haemorrhage [Recovered/Resolved]
  - Dementia [Fatal]
  - Coronary artery disease [Fatal]
  - Diverticulum intestinal haemorrhagic [Recovering/Resolving]
  - Malnutrition [Fatal]
  - Haematemesis [Recovering/Resolving]
  - Hypoxia [Fatal]

NARRATIVE: CASE EVENT DATE: 201612
